FAERS Safety Report 21665245 (Version 2)
Quarter: 2023Q4

REPORT INFORMATION
  Report Type: Spontaneous
  Country: US (occurrence: US)
  Receive Date: 20221201
  Receipt Date: 20231102
  Transmission Date: 20240109
  Serious: Yes (Other)
  Sender: FDA-Public Use
  Company Number: US-SUN PHARMACEUTICAL INDUSTRIES LTD-2022R1-366542

PATIENT
  Age: 6 Year
  Sex: Male

DRUGS (4)
  1. LATANOPROST [Suspect]
     Active Substance: LATANOPROST
     Indication: Glaucoma
     Dosage: UNK/ NIGHTLY
     Route: 065
  2. BRIMONIDINE [Suspect]
     Active Substance: BRIMONIDINE TARTRATE
     Indication: Glaucoma
     Dosage: 0.2% TWICE DAILY, BID
     Route: 065
  3. DORZOLAMIDE\TIMOLOL [Suspect]
     Active Substance: DORZOLAMIDE\TIMOLOL
     Indication: Glaucoma
     Dosage: UNK, BID
     Route: 065
  4. NETARSUDIL [Suspect]
     Active Substance: NETARSUDIL
     Indication: Glaucoma
     Dosage: 1 DROP/0.02%/ AT NIGHT
     Route: 065

REACTIONS (2)
  - Corneal oedema [Recovered/Resolved]
  - Oedema [Recovered/Resolved]
